FAERS Safety Report 9489413 (Version 2)
Quarter: 2013Q3

REPORT INFORMATION
  Report Type: Spontaneous
  Country: US (occurrence: US)
  Receive Date: 20130725
  Receipt Date: 20130920
  Transmission Date: 20140515
  Serious: Yes (Hospitalization)
  Sender: FDA-Public Use
  Company Number: US-GLAXOSMITHKLINE-A1001562A

PATIENT
  Age: 68 Year
  Sex: Female
  Weight: 95.5 kg

DRUGS (1)
  1. AVANDIA [Suspect]
     Indication: DIABETES MELLITUS
     Route: 048
     Dates: start: 200301, end: 200705

REACTIONS (4)
  - Myocardial infarction [Recovering/Resolving]
  - Angioplasty [Unknown]
  - Angina unstable [Unknown]
  - Myocardial ischaemia [Unknown]
